FAERS Safety Report 5089549-9 (Version None)
Quarter: 2006Q3

REPORT INFORMATION
  Report Type: 
  Country: None (occurrence: None)
  Receive Date: 20060822
  Receipt Date: 20060804
  Transmission Date: 20061208
  Serious: Yes (Other)
  Sender: FDA-Public Use
  Company Number: US200608001497

PATIENT
  Age: 60 Year
  Sex: Male

DRUGS (3)
  1. HUMALOG MIX 75/25 [Suspect]
     Indication: DIABETES MELLITUS
  2. CIALIS ^LILLY^ (TADALAFIL) [Concomitant]
  3. HUMALOG MIX 25L/75NPL PEN (HUMALOG MIX 25L/75NPL PEN) PEN, DISPOSABLE [Concomitant]

REACTIONS (1)
  - VISUAL ACUITY REDUCED [None]
